FAERS Safety Report 4705399-4 (Version None)
Quarter: 2005Q3

REPORT INFORMATION
  Report Type: 
  Country: None (occurrence: None)
  Receive Date: 20050701
  Receipt Date: 20010924
  Transmission Date: 20060218
  Serious: Yes (Hospitalization)
  Sender: FDA-Public Use
  Company Number: FR-GLAXOSMITHKLINE-B0121359A

PATIENT
  Age: 1 Day
  Sex: Male
  Weight: 3.4 kg

DRUGS (9)
  1. RETROVIR [Suspect]
     Indication: ANTIVIRAL PROPHYLAXIS
     Dosage: 24MG TWICE PER DAY
     Route: 048
     Dates: start: 20010930
  2. COMBIVIR [Suspect]
     Indication: HIV INFECTION
     Dates: start: 20010327
  3. RETROVIR [Suspect]
     Dates: start: 20010930, end: 20010930
  4. NELFINAVIR [Suspect]
     Indication: HIV INFECTION
     Dosage: 2500MG TWICE PER DAY
     Dates: start: 20000327
  5. COTRIM [Concomitant]
  6. COLPOSEPTINE [Concomitant]
  7. ECONAZOLE NITRATE [Concomitant]
  8. IRON SALT [Concomitant]
  9. SPASFON [Concomitant]

REACTIONS (13)
  - ABDOMINAL DISTENSION [None]
  - ALANINE AMINOTRANSFERASE INCREASED [None]
  - ANAEMIA [None]
  - BLOOD CREATINE PHOSPHOKINASE INCREASED [None]
  - BLOOD KETONE BODY INCREASED [None]
  - BLOOD PYRUVIC ACID DECREASED [None]
  - DRUG EXPOSURE DURING PREGNANCY [None]
  - HYPERTRIGLYCERIDAEMIA [None]
  - LABORATORY TEST ABNORMAL [None]
  - MACROCYTOSIS [None]
  - METABOLIC DISORDER [None]
  - METABOLIC FUNCTION TEST [None]
  - NEUTROPENIA [None]
